FAERS Safety Report 9010624 (Version 2)
Quarter: 2013Q1

REPORT INFORMATION
  Report Type: Spontaneous
  Country: GB (occurrence: GB)
  Receive Date: 20130109
  Receipt Date: 20130131
  Transmission Date: 20140127
  Serious: Yes (Other)
  Sender: FDA-Public Use
  Company Number: GB-SANOFI-AVENTIS-2013SA001051

PATIENT
  Sex: Male

DRUGS (2)
  1. TELFAST [Suspect]
     Indication: RHINITIS
     Route: 048
     Dates: start: 20121121, end: 20130101
  2. NASONEX [Concomitant]
     Indication: RHINITIS
     Dosage: 1 SPRAY IN EACH NOSTRIL TWICE DAILY
     Route: 045
     Dates: start: 20121121

REACTIONS (6)
  - Loss of consciousness [Recovering/Resolving]
  - Vestibular disorder [Unknown]
  - Head discomfort [Recovering/Resolving]
  - Headache [Recovering/Resolving]
  - Dizziness [Recovering/Resolving]
  - Somnolence [Recovering/Resolving]
